APPROVED DRUG PRODUCT: TARGRETIN
Active Ingredient: BEXAROTENE
Strength: 1%
Dosage Form/Route: GEL;TOPICAL
Application: N021056 | Product #001 | TE Code: AB
Applicant: BAUSCH HEALTH IRELAND LTD
Approved: Jun 28, 2000 | RLD: Yes | RS: Yes | Type: RX